FAERS Safety Report 4408354-7 (Version None)
Quarter: 2004Q3

REPORT INFORMATION
  Report Type: 
  Country: None (occurrence: None)
  Receive Date: 20040722
  Receipt Date: 20040709
  Transmission Date: 20050211
  Serious: No
  Sender: FDA-Public Use
  Company Number: 2004UW14306

PATIENT
  Age: 78 Year
  Sex: Female

DRUGS (2)
  1. NEXIUM [Suspect]
     Dosage: 40 MG QD PO
     Route: 048
     Dates: end: 20040101
  2. PREVACID [Concomitant]

REACTIONS (1)
  - RECTAL HAEMORRHAGE [None]
